FAERS Safety Report 25368364 (Version 2)
Quarter: 2025Q2

REPORT INFORMATION
  Report Type: Spontaneous
  Country: TR (occurrence: TR)
  Receive Date: 20250528
  Receipt Date: 20250606
  Transmission Date: 20250717
  Serious: Yes (Other)
  Sender: BAYER HEALTHCARE PHARMACEUTICALS INC.
  Company Number: TR-BAYER-2025A063931

PATIENT
  Age: 58 Year
  Sex: Male

DRUGS (2)
  1. NUBEQA [Suspect]
     Active Substance: DAROLUTAMIDE
     Indication: Prostate cancer stage IV
     Dosage: 600 MG, BID
     Dates: start: 20250507
  2. NUBEQA [Suspect]
     Active Substance: DAROLUTAMIDE
     Indication: Metastases to bone

REACTIONS (2)
  - Spinal cord neoplasm [Recovered/Resolved]
  - Hypoaesthesia [None]

NARRATIVE: CASE EVENT DATE: 20250509
